FAERS Safety Report 12702903 (Version 1)
Quarter: 2016Q3

REPORT INFORMATION
  Report Type: Spontaneous
  Country: SE (occurrence: SE)
  Receive Date: 20160831
  Receipt Date: 20160831
  Transmission Date: 20161109
  Serious: Yes (Life-Threatening)
  Sender: FDA-Public Use
  Company Number: SE-PFIZER INC-2016403587

PATIENT
  Age: 61 Year
  Sex: Male

DRUGS (11)
  1. EPHEDRINE. [Concomitant]
     Active Substance: EPHEDRINE
  2. PHENYLEPHRINE [Concomitant]
     Active Substance: PHENYLEPHRINE\PHENYLEPHRINE HYDROCHLORIDE
     Dosage: ONGOING INFUSION
  3. PROMITEN [Concomitant]
     Active Substance: DEXTRAN 1
  4. PLASMODEX [Concomitant]
  5. ROCURONIUM [Suspect]
     Active Substance: ROCURONIUM BROMIDE
     Indication: MUSCLE RELAXANT THERAPY
     Dosage: DOSE 1, 40 + 10 MG. DOSE 2, 10 MG. DOSE 3, 5 MG.
     Route: 042
     Dates: start: 20160818, end: 20160818
  6. XYLOCAINE [Concomitant]
     Active Substance: LIDOCAINE HYDROCHLORIDE
     Indication: EPIDURAL CATHETER PLACEMENT
  7. FENTANYL. [Concomitant]
     Active Substance: FENTANYL
  8. PENTOTHAL [Concomitant]
     Active Substance: THIOPENTAL SODIUM
  9. XYLOCAINE [Concomitant]
     Active Substance: LIDOCAINE HYDROCHLORIDE
     Indication: BLADDER CATHETERISATION
  10. CHIROCAINE [Concomitant]
     Active Substance: LEVOBUPIVACAINE HYDROCHLORIDE
  11. SEVOFLURANE. [Concomitant]
     Active Substance: SEVOFLURANE
     Dosage: CONTINOUS INHALATION

REACTIONS (3)
  - Flushing [Recovered/Resolved]
  - Peripheral vascular disorder [Recovered/Resolved]
  - Anaphylactic reaction [Recovered/Resolved]

NARRATIVE: CASE EVENT DATE: 20160818
